FAERS Safety Report 9793015 (Version 5)
Quarter: 2014Q2

REPORT INFORMATION
  Report Type: Report from Study
  Country: JP (occurrence: JP)
  Receive Date: 20140102
  Receipt Date: 20140401
  Transmission Date: 20141212
  Serious: Yes (Hospitalization)
  Sender: FDA-Public Use
  Company Number: JP-PFIZER INC-2013371002

PATIENT
  Age: 74 Year
  Sex: Female
  Weight: 53.1 kg

DRUGS (3)
  1. CRIZOTINIB [Suspect]
     Indication: NON-SMALL CELL LUNG CANCER
     Dosage: 250 MG, 2X/DAY
     Route: 048
     Dates: start: 20130820, end: 20130822
  2. CO-DIOVAN [Concomitant]
     Dosage: 1 DF, 1X/DAY
     Route: 048
  3. NORVASC [Concomitant]
     Dosage: 5 MG, 1X/DAY
     Route: 048

REACTIONS (1)
  - Blood creatinine increased [Recovering/Resolving]
